FAERS Safety Report 7773060-8 (Version None)
Quarter: 2011Q3

REPORT INFORMATION
  Report Type: 
  Country: None (occurrence: None)
  Receive Date: 20110922
  Receipt Date: 20101227
  Transmission Date: 20111222
  Serious: No
  Sender: FDA-Public Use
  Company Number: US-ASTRAZENECA-2010SE60849

PATIENT
  Age: 58 Year
  Sex: Male
  Weight: 77.1 kg

DRUGS (10)
  1. PIROXICAM [Concomitant]
  2. METFORMIN HCL [Concomitant]
  3. GLIMEPIRIDE [Concomitant]
  4. CLONAZEPAM [Concomitant]
  5. BUPROPION HCL [Concomitant]
  6. TEMAZEPAM [Concomitant]
  7. LISINOPRIL [Concomitant]
  8. SEROQUEL [Suspect]
     Indication: SLEEP DISORDER
     Dosage: 150 MILLIGRAM TWO TIMES A DAY
     Route: 048
     Dates: start: 20101101
  9. SIMVASTATIN [Concomitant]
  10. FAMOTIDINE [Concomitant]

REACTIONS (2)
  - EATING DISORDER [None]
  - SOMNOLENCE [None]
